FAERS Safety Report 6142072-2 (Version None)
Quarter: 2009Q2

REPORT INFORMATION
  Report Type: 
  Country: None (occurrence: None)
  Receive Date: 20090402
  Receipt Date: 20090323
  Transmission Date: 20091009
  Serious: Yes (Other)
  Sender: FDA-Public Use
  Company Number: US-PFIZER INC-2008153651

PATIENT
  Sex: Female
  Weight: 74.376 kg

DRUGS (4)
  1. CHANTIX [Suspect]
     Indication: SMOKING CESSATION THERAPY
     Dosage: 0.5 MG, 1X/DAY
     Dates: start: 20081101
  2. ANTIHYPERTENSIVES [Concomitant]
     Dosage: UNK
  3. VITAMINS [Concomitant]
     Dosage: UNK
  4. ANTITHROMBOTIC AGENTS [Concomitant]
     Dosage: UNK

REACTIONS (1)
  - LOSS OF CONSCIOUSNESS [None]
